FAERS Safety Report 4509013-2 (Version None)
Quarter: 2004Q4

REPORT INFORMATION
  Report Type: 
  Country: None (occurrence: None)
  Receive Date: 20041122
  Receipt Date: 20041122
  Transmission Date: 20050328
  Serious: Yes (Hospitalization)
  Sender: FDA-Public Use
  Company Number: None

PATIENT
  Age: 62 Year
  Sex: Male

DRUGS (1)
  1. MITOMYCIN [Suspect]
     Indication: THERAPEUTIC EMBOLISATION
     Dates: start: 20040529, end: 20040529

REACTIONS (4)
  - ASTHENIA [None]
  - DIFFICULTY IN WALKING [None]
  - HEPATIC ENCEPHALOPATHY [None]
  - LOOSE STOOLS [None]
